FAERS Safety Report 9784928 (Version 2)
Quarter: 2014Q1

REPORT INFORMATION
  Report Type: Spontaneous
  Country: US (occurrence: US)
  Receive Date: 20131227
  Receipt Date: 20140114
  Transmission Date: 20141002
  Serious: Yes (Other)
  Sender: FDA-Public Use
  Company Number: US-AMGEN-USASP2013089687

PATIENT
  Age: 65 Year
  Sex: Female

DRUGS (4)
  1. ARANESP [Suspect]
     Indication: ANAEMIA
     Dosage: UNK
     Route: 065
     Dates: start: 2002
  2. CYCLOSPORINE [Concomitant]
  3. FORTIS [Concomitant]
  4. PREDNISONE                         /00044702/ [Concomitant]

REACTIONS (3)
  - Angina pectoris [Unknown]
  - Intentional underdose [Unknown]
  - Fatigue [Unknown]
